FAERS Safety Report 10594630 (Version 1)
Quarter: 2014Q4

REPORT INFORMATION
  Report Type: Spontaneous
  Country: US (occurrence: US)
  Receive Date: 20141120
  Receipt Date: 20141120
  Transmission Date: 20150529
  Serious: No
  Sender: FDA-Public Use
  Company Number: US-TEVA-515913USA

PATIENT
  Sex: Female

DRUGS (2)
  1. BUDESONIDE. [Suspect]
     Active Substance: BUDESONIDE
     Route: 055
     Dates: start: 201406
  2. BROVANA [Suspect]
     Active Substance: ARFORMOTEROL TARTRATE
     Route: 065

REACTIONS (4)
  - Alopecia [Unknown]
  - Dyspnoea [Unknown]
  - Chest pain [Unknown]
  - Wrong technique in drug usage process [Unknown]

NARRATIVE: CASE EVENT DATE: 2014
